FAERS Safety Report 18428274 (Version 1)
Quarter: 2020Q4

REPORT INFORMATION
  Report Type: Report from Study
  Country: US (occurrence: US)
  Receive Date: 20201026
  Receipt Date: 20201026
  Transmission Date: 20210114
  Serious: Yes (Death)
  Sender: FDA-Public Use
  Company Number: US-ASTRAZENECA-2020SF38367

PATIENT
  Sex: Male

DRUGS (9)
  1. PREDNISONE. [Concomitant]
     Active Substance: PREDNISONE
  2. TRIAMCINOLONE ACETONIDE. [Concomitant]
     Active Substance: TRIAMCINOLONE ACETONIDE
  3. LOPERAMIDE [Concomitant]
     Active Substance: LOPERAMIDE
  4. EUCERIN [Concomitant]
     Active Substance: ENSULIZOLE\EUCERIN\OCTINOXATE\OCTISALATE\TITANIUM DIOXIDE\ZINC OXIDE
  5. TAGRISSO [Suspect]
     Active Substance: OSIMERTINIB
     Indication: LUNG NEOPLASM MALIGNANT
     Route: 048
     Dates: start: 20160617
  6. COCONUT OIL [Concomitant]
     Active Substance: COCONUT OIL
  7. PANTOPRAZOLE SODIUM. [Concomitant]
     Active Substance: PANTOPRAZOLE SODIUM
  8. CLINDAMYCIN-BENZOYL PEROXIDE [Concomitant]
  9. ONDANSETRON HCL [Concomitant]
     Active Substance: ONDANSETRON HYDROCHLORIDE

REACTIONS (1)
  - Death [Fatal]
